FAERS Safety Report 5751578-7 (Version None)
Quarter: 2008Q2

REPORT INFORMATION
  Report Type: 
  Country: None (occurrence: None)
  Receive Date: 20080528
  Receipt Date: 20080519
  Transmission Date: 20081010
  Serious: Yes (Disabling, Other)
  Sender: FDA-Public Use
  Company Number: PHRM2008FR01533

PATIENT
  Sex: Female
  Weight: 70 kg

DRUGS (4)
  1. ZOMETA [Suspect]
     Indication: METASTASES TO BONE
     Dosage: 4 MG, QMO
     Route: 042
     Dates: start: 20030701, end: 20070307
  2. CLASTOBAN [Suspect]
     Indication: METASTASES TO BONE
     Dosage: 800 MG, BID
     Route: 048
     Dates: start: 20070401
  3. ANTIHYPERTENSIVE DRUGS [Concomitant]
     Indication: HYPERTENSION
  4. ANALGESICS [Concomitant]

REACTIONS (4)
  - IMPAIRED HEALING [None]
  - OSTEONECROSIS [None]
  - RENAL FAILURE [None]
  - TOOTH EXTRACTION [None]
